FAERS Safety Report 5098887-5 (Version None)
Quarter: 2006Q3

REPORT INFORMATION
  Report Type: 
  Country: None (occurrence: None)
  Receive Date: 20060907
  Receipt Date: 20060816
  Transmission Date: 20061208
  Serious: Yes (Hospitalization)
  Sender: FDA-Public Use
  Company Number: FR-AVENTIS-200612840FR

PATIENT
  Age: 91 Year
  Sex: Female
  Weight: 69 kg

DRUGS (8)
  1. LASILIX [Suspect]
     Indication: DRUG USE FOR UNKNOWN INDICATION
     Route: 048
     Dates: end: 20060717
  2. LOPRIL [Suspect]
     Indication: DRUG USE FOR UNKNOWN INDICATION
     Route: 048
     Dates: end: 20060717
  3. ALDALIX [Suspect]
     Indication: DRUG USE FOR UNKNOWN INDICATION
     Route: 048
     Dates: end: 20060717
  4. LEXOMIL [Concomitant]
     Route: 048
  5. MOPRAL [Concomitant]
     Route: 048
     Dates: end: 20060724
  6. BETAHISTINE [Concomitant]
     Route: 048
  7. XOLAAM [Concomitant]
     Route: 048
  8. LOPERAMIDE [Concomitant]

REACTIONS (2)
  - HYPONATRAEMIA [None]
  - RENAL FAILURE ACUTE [None]
